FAERS Safety Report 8882409 (Version 3)
Quarter: 2012Q4

REPORT INFORMATION
  Report Type: 
  Country: US (occurrence: US)
  Receive Date: 20121102
  Receipt Date: 20121214
  Transmission Date: 20130627
  Serious: Yes (Hospitalization, Other)
  Sender: FDA-Public Use
  Company Number: US-PFIZER INC-2012273516

PATIENT
  Age: 23 Year
  Sex: Female

DRUGS (6)
  1. VALIUM [Concomitant]
     Dosage: UNK
  2. PRISTIQ [Suspect]
     Indication: EMOTIONAL DISORDER
     Dosage: three tablets, daily
  3. PRISTIQ [Suspect]
     Indication: MENTAL DISORDER
  4. LAMICTAL [Concomitant]
     Dosage: UNK
  5. WELLBUTRIN SR [Concomitant]
     Dosage: UNK
  6. ADDERALL [Concomitant]
     Dosage: UNK

REACTIONS (2)
  - Road traffic accident [Unknown]
  - Impaired work ability [Unknown]
